FAERS Safety Report 17533689 (Version 1)
Quarter: 2020Q1

REPORT INFORMATION
  Report Type: Spontaneous
  Country: US (occurrence: US)
  Receive Date: 20200312
  Receipt Date: 20200312
  Transmission Date: 20200409
  Serious: Yes (Life-Threatening, Hospitalization)
  Sender: FDA-Public Use
  Company Number: None

PATIENT
  Age: 33 Year
  Sex: Female
  Weight: 111.6 kg

DRUGS (1)
  1. XULANE [Suspect]
     Active Substance: ETHINYL ESTRADIOL\NORELGESTROMIN
     Indication: MENORRHAGIA
     Dosage: ?          OTHER STRENGTH:MCG;QUANTITY:1 PATCH(ES);OTHER FREQUENCY:PER WEEK;?
     Route: 062
     Dates: start: 20200127, end: 20200220

REACTIONS (3)
  - Portal vein occlusion [None]
  - Menorrhagia [None]
  - Surgery [None]

NARRATIVE: CASE EVENT DATE: 20200219
